FAERS Safety Report 9931229 (Version 1)
Quarter: 2014Q1

REPORT INFORMATION
  Report Type: Spontaneous
  Country: IN (occurrence: IN)
  Receive Date: 20140228
  Receipt Date: 20140228
  Transmission Date: 20141002
  Serious: Yes (Hospitalization, Disabling, Other)
  Sender: FDA-Public Use
  Company Number: IN-PAR PHARMACEUTICAL, INC-2014SCPR008943

PATIENT
  Sex: 0

DRUGS (4)
  1. TORSEMIDE [Suspect]
     Indication: PRODUCT USED FOR UNKNOWN INDICATION
     Dosage: 10 MG, / DAY
     Route: 065
  2. OLMESARTAN [Suspect]
     Indication: PRODUCT USED FOR UNKNOWN INDICATION
     Dosage: 20 MG, / DAY
     Route: 065
  3. PERINDOPRIL [Suspect]
     Indication: PRODUCT USED FOR UNKNOWN INDICATION
     Dosage: 4 MG, / DAY
     Route: 065
  4. INSULIN MIXTARD HM [Concomitant]
     Indication: PRODUCT USED FOR UNKNOWN INDICATION
     Dosage: UNK, UNKNOWN
     Route: 065

REACTIONS (5)
  - Paralysis [Recovered/Resolved]
  - Rales [Unknown]
  - Dyspnoea [Recovered/Resolved]
  - Hyperkalaemia [Recovered/Resolved]
  - Restlessness [Recovered/Resolved]
